FAERS Safety Report 8904602 (Version 1)
Quarter: 2012Q4

REPORT INFORMATION
  Report Type: 
  Country: CA (occurrence: CA)
  Receive Date: 20121113
  Receipt Date: 20121113
  Transmission Date: 20130627
  Serious: Yes (Hospitalization)
  Sender: FDA-Public Use
  Company Number: PHBS2002CA08464

PATIENT
  Age: 74 Year
  Sex: Male

DRUGS (3)
  1. EXELON [Suspect]
     Dosage: 1.5 mg, BID
     Route: 065
     Dates: start: 20010114
  2. EXELON [Suspect]
     Dosage: 4.5 mg, BID
     Route: 065
     Dates: start: 20010315, end: 20020502
  3. EXELON [Suspect]
     Dosage: 3.0 mg, BID

REACTIONS (4)
  - Pneumonia [Recovered/Resolved]
  - Flatulence [Not Recovered/Not Resolved]
  - Abdominal pain [Recovered/Resolved]
  - Confusional state [Not Recovered/Not Resolved]
